FAERS Safety Report 9365712 (Version 1)
Quarter: 2013Q2

REPORT INFORMATION
  Report Type: Spontaneous
  Country: US (occurrence: US)
  Receive Date: 20130625
  Receipt Date: 20130625
  Transmission Date: 20140414
  Serious: No
  Sender: FDA-Public Use
  Company Number: US-009507513-1306USA010728

PATIENT
  Age: 62 Year
  Sex: Male

DRUGS (7)
  1. VICTRELIS [Suspect]
     Dosage: 4 DF, TID WITH SNACK
     Route: 048
  2. REBETOL [Suspect]
     Dosage: 200 MG, UNK
  3. PEGASYS [Suspect]
     Dosage: 135MCG/0.5ML, QM
  4. ALLOPURINOL [Concomitant]
     Dosage: 100 MG, UNK
  5. LISINOPRIL [Concomitant]
     Dosage: 10 MG, UNK
  6. ASPIRIN [Concomitant]
     Dosage: 81 MG, UNK
  7. ATIVAN [Concomitant]
     Dosage: 2 MG, UNK

REACTIONS (1)
  - Mental status changes [Unknown]
